FAERS Safety Report 7605041-9 (Version None)
Quarter: 2011Q3

REPORT INFORMATION
  Report Type: 
  Country: None (occurrence: None)
  Receive Date: 20110713
  Receipt Date: 20110702
  Transmission Date: 20111222
  Serious: Yes (Other)
  Sender: FDA-Public Use
  Company Number: JP-BRISTOL-MYERS SQUIBB COMPANY-15892342

PATIENT
  Sex: Male

DRUGS (3)
  1. BROTIZOLAM [Concomitant]
     Dosage: TABS
  2. LORAZEPAM [Concomitant]
     Dosage: TABS
  3. ABILIFY [Suspect]
     Route: 048

REACTIONS (3)
  - PHARYNGITIS [None]
  - APNOEA [None]
  - INSOMNIA [None]
